FAERS Safety Report 7506879-9 (Version None)
Quarter: 2011Q2

REPORT INFORMATION
  Report Type: 
  Country: None (occurrence: None)
  Receive Date: 20110526
  Receipt Date: 20110519
  Transmission Date: 20111010
  Serious: Yes (Other)
  Sender: FDA-Public Use
  Company Number: AR-GENZYME-CERZ-1001559

PATIENT

DRUGS (1)
  1. CEREZYME [Suspect]
     Indication: GAUCHER'S DISEASE
     Dosage: 58 U/KG, Q2W
     Route: 042

REACTIONS (3)
  - OSTEOPOROSIS [None]
  - SPINAL FRACTURE [None]
  - BONE PAIN [None]
